FAERS Safety Report 10133517 (Version 2)
Quarter: 2014Q2

REPORT INFORMATION
  Report Type: Spontaneous
  Country: US (occurrence: US)
  Receive Date: 20140428
  Receipt Date: 20140428
  Transmission Date: 20141212
  Serious: Yes (Hospitalization)
  Sender: FDA-Public Use
  Company Number: US-GLAXOSMITHKLINE-A0878486A

PATIENT
  Age: 67 Year
  Sex: Male

DRUGS (1)
  1. AVANDIA [Suspect]
     Indication: DIABETES MELLITUS
     Dosage: 4MG PER DAY
     Dates: start: 20060224, end: 20060512

REACTIONS (6)
  - Coronary artery bypass [Not Recovered/Not Resolved]
  - Cardiac failure congestive [Unknown]
  - Diabetes mellitus [Unknown]
  - Acute coronary syndrome [Unknown]
  - Ischaemic cardiomyopathy [Unknown]
  - Ventricular tachycardia [Unknown]
